FAERS Safety Report 20109075 (Version 1)
Quarter: 2021Q4

REPORT INFORMATION
  Report Type: Spontaneous
  Country: US (occurrence: US)
  Receive Date: 20211124
  Receipt Date: 20211124
  Transmission Date: 20220303
  Serious: No
  Sender: FDA-Public Use
  Company Number: US-GW PHARMA-202111USGW05721

PATIENT

DRUGS (4)
  1. EPIDIOLEX [Suspect]
     Active Substance: CANNABIDIOL
     Indication: Epilepsy
     Dosage: 150 MILLIGRAM, QD (50 MG IN MORNING AND 100 MG IN EVENING)
     Route: 048
     Dates: start: 202110, end: 2021
  2. EPIDIOLEX [Suspect]
     Active Substance: CANNABIDIOL
     Indication: Epilepsy
     Dosage: 225 MILLIGRAM, QD (75 MG IN MORNING AND 150 MG IN EVENING)
     Route: 048
     Dates: start: 2021, end: 2021
  3. EPIDIOLEX [Suspect]
     Active Substance: CANNABIDIOL
     Dosage: 300 MILLIGRAM, QD (100 MG IN MORNING AND 200 MG IN EVENING)
     Route: 048
     Dates: start: 2021, end: 2021
  4. EPIDIOLEX [Suspect]
     Active Substance: CANNABIDIOL
     Dosage: 400 MILLIGRAM, QD (100 MG IN MORNING AND 300 MG IN EVENING)
     Route: 048
     Dates: start: 2021

REACTIONS (1)
  - Acne [Unknown]

NARRATIVE: CASE EVENT DATE: 20210101
